FAERS Safety Report 18505150 (Version 1)
Quarter: 2020Q4

REPORT INFORMATION
  Report Type: Spontaneous
  Country: US (occurrence: US)
  Receive Date: 20201116
  Receipt Date: 20201116
  Transmission Date: 20210114
  Serious: Yes (Other)
  Sender: FDA-Public Use
  Company Number: US-ROCHE-2711063

PATIENT
  Age: 48 Year
  Sex: Female

DRUGS (1)
  1. OCREVUS [Suspect]
     Active Substance: OCRELIZUMAB
     Indication: RELAPSING-REMITTING MULTIPLE SCLEROSIS
     Dosage: FIRST TWO HALF DOSES ;ONGOING: YES
     Route: 042
     Dates: start: 202008

REACTIONS (2)
  - Urinary tract infection [Not Recovered/Not Resolved]
  - Streptococcus test positive [Not Recovered/Not Resolved]

NARRATIVE: CASE EVENT DATE: 202009
